FAERS Safety Report 9684305 (Version 2)
Quarter: 2014Q1

REPORT INFORMATION
  Report Type: Spontaneous
  Country: US (occurrence: US)
  Receive Date: 20131112
  Receipt Date: 20140113
  Transmission Date: 20141002
  Serious: No
  Sender: FDA-Public Use
  Company Number: US-TEVA-443613USA

PATIENT
  Age: 56 Year
  Sex: Female
  Weight: 56.75 kg

DRUGS (11)
  1. QVAR [Suspect]
     Indication: ASTHMA
     Dates: end: 20131103
  2. SYNTHROID [Concomitant]
     Indication: HYPOTHYROIDISM
     Route: 048
  3. SINGULAIR [Concomitant]
     Route: 048
  4. PEPCID [Concomitant]
     Indication: GASTRIC DISORDER
     Route: 048
  5. ALLEGRA OTC [Concomitant]
     Indication: HYPERSENSITIVITY
     Route: 048
  6. NASONEX [Concomitant]
  7. VITAMIN B COMPLEX [Concomitant]
     Indication: VITAMIN SUPPLEMENTATION
  8. CITRICAL [Concomitant]
     Indication: VITAMIN SUPPLEMENTATION
     Dosage: 300 MILLIGRAM DAILY;
     Route: 048
  9. BIOTIN [Concomitant]
     Indication: VITAMIN SUPPLEMENTATION
  10. VITAMIN D [Concomitant]
     Indication: VITAMIN SUPPLEMENTATION
  11. ZINC COLD AND FLU SEASON [Concomitant]

REACTIONS (7)
  - Chest pain [Recovered/Resolved]
  - Respiratory tract inflammation [Recovered/Resolved]
  - Pharyngeal inflammation [Recovered/Resolved]
  - Fungal infection [Recovered/Resolved]
  - Throat irritation [Recovered/Resolved]
  - Burning sensation [Recovered/Resolved]
  - Product quality issue [Unknown]
